FAERS Safety Report 20845518 (Version 1)
Quarter: 2022Q2

REPORT INFORMATION
  Report Type: Spontaneous
  Country: CN (occurrence: CN)
  Receive Date: 20220518
  Receipt Date: 20220518
  Transmission Date: 20220720
  Serious: Yes (Other)
  Sender: FDA-Public Use
  Company Number: CN-NOVARTISPH-NVSC2022CN112488

PATIENT
  Age: 49 Year
  Sex: Male

DRUGS (3)
  1. DEFERASIROX [Suspect]
     Active Substance: DEFERASIROX
     Indication: Lymphocytic leukaemia
     Dosage: UNK
     Route: 065
     Dates: start: 2019
  2. DEFERASIROX [Suspect]
     Active Substance: DEFERASIROX
     Indication: Aplasia pure red cell
  3. DEFERASIROX [Suspect]
     Active Substance: DEFERASIROX
     Indication: Iron overload

REACTIONS (2)
  - Renal impairment [Unknown]
  - Product use in unapproved indication [Unknown]
